FAERS Safety Report 11437975 (Version 2)
Quarter: 2015Q4

REPORT INFORMATION
  Report Type: Spontaneous
  Country: US (occurrence: US)
  Receive Date: 20150831
  Receipt Date: 20151103
  Transmission Date: 20160304
  Serious: Yes (Hospitalization)
  Sender: FDA-Public Use
  Company Number: US-ACTELION-A-US2015-117383

PATIENT
  Age: 89 Year
  Sex: Female

DRUGS (2)
  1. TRACLEER [Suspect]
     Active Substance: BOSENTAN
     Indication: PULMONARY ARTERIAL HYPERTENSION
     Dosage: UNK
     Route: 048
  2. ADCIRCA [Concomitant]
     Active Substance: TADALAFIL

REACTIONS (6)
  - Atrial fibrillation [Unknown]
  - Blood pressure increased [Recovering/Resolving]
  - Asthenia [Unknown]
  - Atrial flutter [Unknown]
  - Fatigue [Unknown]
  - Cardiac pacemaker insertion [Unknown]
